FAERS Safety Report 8172172-7 (Version None)
Quarter: 2012Q1

REPORT INFORMATION
  Report Type: 
  Country: None (occurrence: None)
  Receive Date: 20120228
  Receipt Date: 20120220
  Transmission Date: 20120608
  Serious: Yes (Hospitalization, Other)
  Sender: FDA-Public Use
  Company Number: US-ASTRAZENECA-2010SE54297

PATIENT
  Age: 70 Year
  Sex: Female
  Weight: 77.1 kg

DRUGS (9)
  1. LAMICTAL [Concomitant]
     Dosage: HS
  2. ULTRAM [Concomitant]
     Indication: ARTHRITIS
  3. SEROQUEL [Suspect]
     Route: 048
  4. SEROQUEL [Suspect]
     Route: 048
  5. SEROQUEL [Suspect]
     Indication: BIPOLAR DISORDER
     Route: 048
     Dates: start: 20000101
  6. SEROQUEL [Suspect]
     Route: 048
  7. SEROQUEL [Suspect]
     Route: 048
  8. SEROQUEL [Suspect]
     Route: 048
  9. SEROQUEL [Suspect]
     Route: 048

REACTIONS (11)
  - INITIAL INSOMNIA [None]
  - THERAPEUTIC RESPONSE UNEXPECTED [None]
  - CONVERSION DISORDER [None]
  - MIDDLE INSOMNIA [None]
  - ROAD TRAFFIC ACCIDENT [None]
  - DRUG DOSE OMISSION [None]
  - THERAPEUTIC RESPONSE INCREASED [None]
  - INSOMNIA [None]
  - DRUG EFFECT DECREASED [None]
  - BLOOD PRESSURE ABNORMAL [None]
  - ACTIVITIES OF DAILY LIVING IMPAIRED [None]
